FAERS Safety Report 19032458 (Version 6)
Quarter: 2021Q3

REPORT INFORMATION
  Report Type: Report from Study
  Country: MX (occurrence: MX)
  Receive Date: 20210319
  Receipt Date: 20210812
  Transmission Date: 20211014
  Serious: Yes (Other)
  Sender: FDA-Public Use
  Company Number: MX-BAYER-2020-280315

PATIENT
  Age: 69 Year
  Sex: Male

DRUGS (4)
  1. NEXAVAR [Suspect]
     Active Substance: SORAFENIB
     Indication: RENAL CELL CARCINOMA
     Dosage: 400 MG, BID
     Dates: start: 20201109, end: 20210702
  2. NEXAVAR [Suspect]
     Active Substance: SORAFENIB
     Indication: METASTASES TO LUNG
  3. DEXPANTHENOL. [Concomitant]
     Active Substance: DEXPANTHENOL
     Dosage: UNK
  4. UREA. [Concomitant]
     Active Substance: UREA
     Dosage: UNK

REACTIONS (11)
  - Off label use [None]
  - Inflammation [None]
  - Gait disturbance [None]
  - Swelling face [Recovering/Resolving]
  - Palmoplantar keratoderma [Recovered/Resolved]
  - Gastrointestinal motility disorder [Not Recovered/Not Resolved]
  - Skin discolouration [Recovering/Resolving]
  - Acne [None]
  - Aphonia [None]
  - Metastases to pelvis [Not Recovered/Not Resolved]
  - Pain in extremity [None]

NARRATIVE: CASE EVENT DATE: 202011
